FAERS Safety Report 9640160 (Version 1)
Quarter: 2013Q4

REPORT INFORMATION
  Report Type: Spontaneous
  Country: DE (occurrence: DE)
  Receive Date: 20131023
  Receipt Date: 20131023
  Transmission Date: 20140711
  Serious: Yes (Disabling, Other)
  Sender: FDA-Public Use
  Company Number: DE-AMGEN-DEUSP2013073263

PATIENT
  Age: 78 Year
  Sex: Female
  Weight: 71 kg

DRUGS (1)
  1. XGEVA [Suspect]
     Indication: METASTASES TO BONE
     Dosage: 120 UNK, Q4WK
     Route: 058
     Dates: start: 201302, end: 201305

REACTIONS (1)
  - Osteonecrosis of jaw [Not Recovered/Not Resolved]
